FAERS Safety Report 13223754 (Version 1)
Quarter: 2017Q1

REPORT INFORMATION
  Report Type: Spontaneous
  Country: US (occurrence: US)
  Receive Date: 20170212
  Receipt Date: 20170212
  Transmission Date: 20170428
  Serious: No
  Sender: FDA-Public Use
  Company Number: US-SHIRE-US201701763

PATIENT
  Sex: Male
  Weight: 147.39 kg

DRUGS (1)
  1. VYVANSE [Suspect]
     Active Substance: LISDEXAMFETAMINE DIMESYLATE
     Indication: ATTENTION DEFICIT/HYPERACTIVITY DISORDER
     Dosage: 50 MG, 2X/DAY:BID
     Route: 048

REACTIONS (2)
  - No adverse event [Recovered/Resolved]
  - Prescribed overdose [Recovered/Resolved]
